FAERS Safety Report 14329677 (Version 2)
Quarter: 2018Q2

REPORT INFORMATION
  Report Type: Report from Study
  Country: CN (occurrence: CN)
  Receive Date: 20171227
  Receipt Date: 20180410
  Transmission Date: 20180711
  Serious: Yes (Death)
  Sender: FDA-Public Use
  Company Number: CN-PFIZER INC-2017546230

PATIENT
  Age: 4 Month
  Sex: Female

DRUGS (2)
  1. TIGECYCLINE. [Suspect]
     Active Substance: TIGECYCLINE
     Indication: PNEUMONIA
     Dosage: 2 MG/KG, UNK  (LOAD DOSE, INFUSED OVER 1 HOUR)
     Route: 042
  2. TIGECYCLINE. [Suspect]
     Active Substance: TIGECYCLINE
     Indication: SEPSIS
     Dosage: 1 MG/KG, 2X/DAY (MAINTENANCE DOSE, INFUSED OVER 1 HOUR, Q12H)
     Route: 042

REACTIONS (1)
  - Drug ineffective for unapproved indication [Fatal]
